FAERS Safety Report 10181840 (Version 1)
Quarter: 2014Q2

REPORT INFORMATION
  Report Type: Spontaneous
  Country: US (occurrence: US)
  Receive Date: 20140519
  Receipt Date: 20140519
  Transmission Date: 20141212
  Serious: Yes (Hospitalization)
  Sender: FDA-Public Use
  Company Number: US-B.I. PHARMACEUTICALS,INC./RIDGEFIELD-2014-BI-21455BP

PATIENT
  Age: 82 Year
  Sex: Female
  Weight: 68 kg

DRUGS (11)
  1. SPIRIVA [Suspect]
     Indication: CHRONIC OBSTRUCTIVE PULMONARY DISEASE
     Dosage: 18 MCG
     Route: 055
     Dates: start: 201309
  2. PROAIR HFA [Concomitant]
     Indication: INHALATION THERAPY
     Dosage: FORMULATION: INHALATION SOLUTION
     Route: 055
  3. FLUTICASONE [Concomitant]
     Indication: SEASONAL ALLERGY
     Dosage: FORMULATION: NASAL SPRAY
     Route: 045
  4. HYDRALAZINE [Concomitant]
     Indication: HYPERTENSION
     Dosage: 150 MG
     Route: 048
  5. LISINOPRIL [Concomitant]
     Indication: HYPERTENSION
     Dosage: 20 MG
     Route: 048
  6. CARVEDILOL [Concomitant]
     Indication: HYPERTENSION
     Dosage: 50 MG
     Route: 048
  7. ASPIRIN [Concomitant]
     Indication: ROUTINE HEALTH MAINTENANCE
     Dosage: 81 MG
     Route: 048
  8. PLAVIX [Concomitant]
     Indication: ANTICOAGULANT THERAPY
     Dosage: 75 MG
     Route: 048
  9. LASIX [Concomitant]
     Indication: HYPERTENSION
     Dosage: 20 MG
     Route: 048
  10. ATORVASTATIN [Concomitant]
     Indication: BLOOD CHOLESTEROL INCREASED
     Dosage: 10 MG
     Route: 048
  11. ATIVAN [Concomitant]
     Indication: ANXIETY
     Dosage: 5 MG
     Route: 048

REACTIONS (1)
  - Arterial occlusive disease [Recovered/Resolved]
